FAERS Safety Report 20620933 (Version 1)
Quarter: 2022Q1

REPORT INFORMATION
  Report Type: Spontaneous
  Country: US (occurrence: None)
  Receive Date: 20220321
  Receipt Date: 20220321
  Transmission Date: 20220423
  Serious: No
  Sender: FDA-Public Use
  Company Number: None

PATIENT
  Sex: Female

DRUGS (1)
  1. HUMIRA [Suspect]
     Active Substance: ADALIMUMAB
     Indication: Crohn^s disease
     Dosage: INJECT 160 MG UNDER THE SKIN ON DAY 1, THEN 80 MG ON DAY 15. ??
     Route: 058
     Dates: start: 202202

REACTIONS (6)
  - Palpitations [None]
  - Dyspnoea [None]
  - Lymphadenopathy [None]
  - Pyrexia [None]
  - Restlessness [None]
  - Affective disorder [None]
